FAERS Safety Report 10531224 (Version 1)
Quarter: 2014Q4

REPORT INFORMATION
  Report Type: Report from Study
  Country: BR (occurrence: BR)
  Receive Date: 20141021
  Receipt Date: 20141021
  Transmission Date: 20150529
  Serious: Yes (Hospitalization, Other)
  Sender: FDA-Public Use
  Company Number: BR-ABBVIE-14K-020-1296153-00

PATIENT
  Age: 38 Year
  Sex: Female
  Weight: 73 kg

DRUGS (1)
  1. HUMIRA [Suspect]
     Active Substance: ADALIMUMAB
     Indication: ANKYLOSING SPONDYLITIS
     Route: 058
     Dates: start: 20130101, end: 201312

REACTIONS (11)
  - Septic shock [Recovering/Resolving]
  - Immunodeficiency [Recovered/Resolved]
  - Body temperature decreased [Unknown]
  - Infection [Unknown]
  - Immunodeficiency [Recovering/Resolving]
  - Hypotension [Unknown]
  - Ovarian abscess [Unknown]
  - Abdominal pain [Unknown]
  - Intestinal haemorrhage [Unknown]
  - Investigation [Unknown]
  - Pancreatitis [Recovered/Resolved]

NARRATIVE: CASE EVENT DATE: 201312
